FAERS Safety Report 13146874 (Version 3)
Quarter: 2017Q1

REPORT INFORMATION
  Report Type: Spontaneous
  Country: JP (occurrence: JP)
  Receive Date: 20170125
  Receipt Date: 20170331
  Transmission Date: 20170428
  Serious: Yes (Other)
  Sender: FDA-Public Use
  Company Number: JP-009507513-1611JPN000334J

PATIENT
  Age: 66 Year
  Sex: Male
  Weight: 49 kg

DRUGS (17)
  1. CUBICIN [Suspect]
     Active Substance: DAPTOMYCIN
     Dosage: 404 MG, QD
     Route: 042
     Dates: start: 20150307, end: 20150326
  2. NOVOLIN R [Concomitant]
     Active Substance: INSULIN HUMAN
     Dosage: 10 IU, QD
     Route: 042
     Dates: start: 20150313, end: 20150430
  3. INTRALIPOS [Concomitant]
     Active Substance: SOYBEAN OIL
     Dosage: 200 ML, QD
     Route: 042
     Dates: start: 20150317, end: 20150508
  4. LANSOPRAZOLE. [Concomitant]
     Active Substance: LANSOPRAZOLE
     Dosage: 30 MG, QD
     Route: 048
     Dates: end: 20150928
  5. NEUART [Concomitant]
     Active Substance: ANTITHROMBIN III HUMAN
     Indication: DISSEMINATED INTRAVASCULAR COAGULATION
     Dosage: UNK
     Route: 051
     Dates: start: 20150313, end: 20150315
  6. ABILIFY [Concomitant]
     Active Substance: ARIPIPRAZOLE
     Dosage: 12 MG, QD
     Route: 048
     Dates: start: 20150310, end: 20150406
  7. ANAEMETRO [Concomitant]
     Active Substance: METRONIDAZOLE
     Dosage: 500 MG, TID
     Route: 042
     Dates: start: 20150323, end: 20150406
  8. ATORVASTATIN [Concomitant]
     Active Substance: ATORVASTATIN
     Dosage: 10 MG, QD
     Route: 048
     Dates: end: 20150928
  9. DIOVAN [Concomitant]
     Active Substance: VALSARTAN
     Dosage: 80 MG, QD
     Route: 048
     Dates: end: 20150410
  10. VERAPAMIL HYDROCHLORIDE. [Concomitant]
     Active Substance: VERAPAMIL HYDROCHLORIDE
     Dosage: 40 MG, BID
     Route: 048
     Dates: end: 20150928
  11. DEXTROSE. [Concomitant]
     Active Substance: DEXTROSE
     Dosage: 500 ML, QD
     Route: 042
     Dates: start: 20150313, end: 20150430
  12. AMIPAREN [Concomitant]
     Active Substance: AMINO ACIDS
     Dosage: 200 ML, QD
     Route: 042
     Dates: start: 20150313, end: 20150430
  13. VITAJECT [Concomitant]
     Active Substance: CYANOCOBALAMIN\PYRIDOXAMINE HYDROCHLORIDE\THIAMINE HYDROCHLORIDE
     Dosage: 1 DF, QD
     Route: 042
     Dates: start: 20150313, end: 20150430
  14. ELEJECT [Concomitant]
     Dosage: 1 DF, QD
     Route: 042
     Dates: start: 20150313, end: 20150430
  15. BAYASPIRIN [Concomitant]
     Active Substance: ASPIRIN
     Dosage: 100 MG, QD
     Route: 048
     Dates: end: 20150529
  16. PLAVIX [Concomitant]
     Active Substance: CLOPIDOGREL BISULFATE
     Dosage: 75 MG, QD
     Route: 048
     Dates: end: 20150928
  17. RECOMODULIN [Concomitant]
     Active Substance: THROMBOMODULIN ALFA
     Indication: DISSEMINATED INTRAVASCULAR COAGULATION
     Dosage: UNK
     Route: 051
     Dates: start: 20150313, end: 20150319

REACTIONS (3)
  - Disseminated intravascular coagulation [Recovered/Resolved]
  - Blood creatine phosphokinase increased [Recovered/Resolved]
  - Clostridium test positive [Unknown]

NARRATIVE: CASE EVENT DATE: 20150313
